FAERS Safety Report 11675544 (Version 3)
Quarter: 2015Q4

REPORT INFORMATION
  Report Type: Report from Study
  Country: US (occurrence: US)
  Receive Date: 20151028
  Receipt Date: 20151210
  Transmission Date: 20160304
  Serious: Yes (Other)
  Sender: FDA-Public Use
  Company Number: US-AMGEN-USASL2014096767

PATIENT
  Age: 57 Year
  Sex: Female

DRUGS (3)
  1. LEFLUNOMIDE. [Concomitant]
     Active Substance: LEFLUNOMIDE
     Dosage: UNK
  2. ENBREL [Suspect]
     Active Substance: ETANERCEPT
     Indication: RHEUMATOID ARTHRITIS
     Dosage: 50 MG, QWK
     Route: 065
     Dates: start: 20141001, end: 201508
  3. PLAQUENIL [Concomitant]
     Active Substance: HYDROXYCHLOROQUINE SULFATE
     Dosage: UNK

REACTIONS (14)
  - Exostosis [Unknown]
  - Eye swelling [Not Recovered/Not Resolved]
  - Vaginal infection [Unknown]
  - Immunosuppression [Unknown]
  - Local swelling [Not Recovered/Not Resolved]
  - Fatigue [Unknown]
  - Arthritis [Unknown]
  - Red blood cell sedimentation rate increased [Not Recovered/Not Resolved]
  - Grip strength decreased [Unknown]
  - Swelling face [Not Recovered/Not Resolved]
  - Malaise [Unknown]
  - Vaginal prolapse [Unknown]
  - Drug effect incomplete [Unknown]
  - Diarrhoea [Unknown]

NARRATIVE: CASE EVENT DATE: 2014
